FAERS Safety Report 5636718-2 (Version None)
Quarter: 2008Q1

REPORT INFORMATION
  Report Type: 
  Country: None (occurrence: None)
  Receive Date: 20080225
  Receipt Date: 20080211
  Transmission Date: 20080703
  Serious: Yes (Other)
  Sender: FDA-Public Use
  Company Number: GB-ELI_LILLY_AND_COMPANY-GB200802002646

PATIENT
  Sex: Female

DRUGS (1)
  1. OLANZAPINE [Suspect]

REACTIONS (2)
  - ANAEMIA [None]
  - NEUTROPHIL COUNT DECREASED [None]
